FAERS Safety Report 8070974-9 (Version None)
Quarter: 2012Q1

REPORT INFORMATION
  Report Type: 
  Country: None (occurrence: None)
  Receive Date: 20120125
  Receipt Date: 20120123
  Transmission Date: 20120608
  Serious: Yes (Hospitalization)
  Sender: FDA-Public Use
  Company Number: US-MERCK-1105USA01168

PATIENT
  Age: 65 Year
  Sex: Female

DRUGS (17)
  1. FOSAMAX [Suspect]
     Indication: OSTEOPOROSIS
     Route: 048
     Dates: start: 19990101, end: 20090101
  2. FOSAMAX [Suspect]
     Route: 048
     Dates: end: 20100108
  3. FOSAMAX [Suspect]
     Route: 048
  4. SELECTIVE ESTROGEN RECEPTOR MODULATOR (UNSPECIFIED) [Concomitant]
     Route: 065
     Dates: start: 20070101, end: 20070101
  5. ALENDRONATE SODIUM [Suspect]
     Route: 048
  6. FOSAMAX [Suspect]
     Route: 048
     Dates: end: 20100108
  7. VIACTIV SOFT CALCIUM CHEWS [Concomitant]
     Route: 065
     Dates: start: 20030101, end: 20110601
  8. VITAMIN D (UNSPECIFIED) [Concomitant]
     Route: 065
     Dates: start: 20030101, end: 20110101
  9. CITRACAL [Concomitant]
     Route: 065
     Dates: start: 20030101, end: 20110601
  10. OMEGA-3 MARINE TRIGLYCERIDES [Concomitant]
     Route: 065
     Dates: start: 20030101, end: 20110601
  11. EVISTA [Suspect]
     Indication: OSTEOPOROSIS
     Route: 048
  12. FOSAMAX [Suspect]
     Route: 048
  13. VITAMINS (UNSPECIFIED) [Concomitant]
     Route: 065
     Dates: start: 19800101, end: 20110601
  14. FOSAMAX [Suspect]
     Indication: OSTEOPENIA
     Route: 048
     Dates: start: 19990101, end: 20090101
  15. LOVAZA [Concomitant]
     Route: 065
     Dates: start: 20030101, end: 20110601
  16. VITAMIN E [Concomitant]
     Route: 065
     Dates: start: 20030101, end: 20110601
  17. FOSAMAX PLUS D [Suspect]
     Route: 048

REACTIONS (28)
  - MIXED INCONTINENCE [None]
  - INTERVERTEBRAL DISC DEGENERATION [None]
  - PSEUDOMEMBRANOUS COLITIS [None]
  - NOCTURIA [None]
  - WEIGHT DECREASED [None]
  - VULVOVAGINAL CANDIDIASIS [None]
  - SINUSITIS [None]
  - FALL [None]
  - FEMUR FRACTURE [None]
  - PHARYNGITIS [None]
  - AORTIC ARTERIOSCLEROSIS [None]
  - PNEUMONIA [None]
  - IRON DEFICIENCY ANAEMIA [None]
  - FRACTURE [None]
  - VOMITING [None]
  - DIARRHOEA [None]
  - BONE PAIN [None]
  - ADVERSE DRUG REACTION [None]
  - HYPERTENSION [None]
  - CERUMEN IMPACTION [None]
  - TRACHEITIS [None]
  - TYPE V HYPERLIPIDAEMIA [None]
  - FATIGUE [None]
  - DECREASED APPETITE [None]
  - PYREXIA [None]
  - DIVERTICULITIS [None]
  - SCIATICA [None]
  - INTERSTITIAL LUNG DISEASE [None]
